FAERS Safety Report 8444772-8 (Version None)
Quarter: 2012Q2

REPORT INFORMATION
  Report Type: 
  Country: None (occurrence: None)
  Receive Date: 20120612
  Receipt Date: 20120612
  Transmission Date: 20120825
  Serious: Yes (Death, Hospitalization)
  Sender: FDA-Public Use
  Company Number: None

PATIENT
  Sex: Male
  Weight: 76.4 kg

DRUGS (4)
  1. SUTENT [Suspect]
     Indication: DRUG RESISTANCE
     Dosage: 25 MG EVERY DAY 047
     Route: 048
     Dates: start: 20120307
  2. SUTENT [Suspect]
     Indication: GASTROINTESTINAL STROMAL TUMOUR
     Dosage: 25 MG EVERY DAY 047
     Route: 048
     Dates: start: 20120307
  3. SUTENT [Suspect]
     Indication: DRUG RESISTANCE
     Dosage: 12.5 MG EVERY DAY 047
     Route: 048
     Dates: start: 20120307
  4. SUTENT [Suspect]
     Indication: GASTROINTESTINAL STROMAL TUMOUR
     Dosage: 12.5 MG EVERY DAY 047
     Route: 048
     Dates: start: 20120307

REACTIONS (12)
  - DECREASED APPETITE [None]
  - APHAGIA [None]
  - BLISTER [None]
  - ASTHENIA [None]
  - CONFUSIONAL STATE [None]
  - RESPIRATORY FAILURE [None]
  - PLATELET COUNT DECREASED [None]
  - NAUSEA [None]
  - VOMITING [None]
  - DIARRHOEA [None]
  - ABDOMINAL PAIN [None]
  - METABOLIC ACIDOSIS [None]
